FAERS Safety Report 5024392-8 (Version None)
Quarter: 2006Q2

REPORT INFORMATION
  Report Type: 
  Country: None (occurrence: None)
  Receive Date: 20060613
  Receipt Date: 20060606
  Transmission Date: 20061013
  Serious: Yes (Other)
  Sender: FDA-Public Use
  Company Number: PHEH2006US07404

PATIENT
  Sex: Female

DRUGS (2)
  1. ZELNORM [Suspect]
  2. MILK OF MAGNESIA TAB [Suspect]

REACTIONS (7)
  - DEHYDRATION [None]
  - DIARRHOEA [None]
  - DRUG INEFFECTIVE [None]
  - HEADACHE [None]
  - INFLUENZA LIKE ILLNESS [None]
  - PAIN [None]
  - SOMNOLENCE [None]
